FAERS Safety Report 19530225 (Version 1)
Quarter: 2021Q3

REPORT INFORMATION
  Report Type: Spontaneous
  Country: GB (occurrence: GB)
  Receive Date: 20210713
  Receipt Date: 20210713
  Transmission Date: 20211014
  Serious: Yes (Other)
  Sender: FDA-Public Use
  Company Number: GB-TEVA-2021-GB-1930813

PATIENT
  Age: 45 Year
  Sex: Male
  Weight: 130 kg

DRUGS (2)
  1. AMLODIPINE [Suspect]
     Active Substance: AMLODIPINE BESYLATE
     Dosage: 10 MILLIGRAM DAILY;
     Dates: start: 20210524
  2. CANDESARTAN. [Concomitant]
     Active Substance: CANDESARTAN
     Dosage: 1 DOSAGE FORMS DAILY;
     Dates: start: 20210628

REACTIONS (3)
  - Peripheral swelling [Recovering/Resolving]
  - Myalgia [Unknown]
  - Fatigue [Unknown]
